FAERS Safety Report 4940609-X (Version None)
Quarter: 2006Q1

REPORT INFORMATION
  Report Type: 
  Country: None (occurrence: None)
  Receive Date: 20060127
  Receipt Date: 20051028
  Transmission Date: 20060701
  Serious: Yes (Other)
  Sender: FDA-Public Use
  Company Number: 2005RL000163

PATIENT
  Sex: 0

DRUGS (2)
  1. PROPAFENONE HYDROCHLORIDE [Suspect]
     Indication: ARRHYTHMIA PROPHYLAXIS
     Dosage: QD
  2. ANTICOAGULANT (NOS) [Concomitant]

REACTIONS (1)
  - ATRIAL FLUTTER [None]
